FAERS Safety Report 10763571 (Version 4)
Quarter: 2015Q3

REPORT INFORMATION
  Report Type: Spontaneous
  Country: US (occurrence: US)
  Receive Date: 20150204
  Receipt Date: 20150831
  Transmission Date: 20151125
  Serious: No
  Sender: FDA-Public Use
  Company Number: US-GLAXOSMITHKLINE-US2014GSK049224

PATIENT
  Sex: Female

DRUGS (3)
  1. PROMACTA [Suspect]
     Active Substance: ELTROMBOPAG OLAMINE
     Indication: IMMUNE THROMBOCYTOPENIC PURPURA
     Dosage: 50 MG, QD
     Route: 065
     Dates: start: 20140625
  2. PROMACTA [Suspect]
     Active Substance: ELTROMBOPAG OLAMINE
     Dosage: 50 MG, QD
     Route: 048
     Dates: start: 20140625
  3. PROMACTA [Suspect]
     Active Substance: ELTROMBOPAG OLAMINE
     Dosage: 50 MG, QOD
     Route: 065

REACTIONS (7)
  - Anger [Unknown]
  - Dry mouth [Unknown]
  - Cardiac valve disease [Unknown]
  - Fatigue [Unknown]
  - Laboratory test abnormal [Unknown]
  - Malaise [Unknown]
  - Dyspnoea [Unknown]
